FAERS Safety Report 11455031 (Version 1)
Quarter: 2015Q3

REPORT INFORMATION
  Report Type: Spontaneous
  Country: JP (occurrence: JP)
  Receive Date: 20150903
  Receipt Date: 20150903
  Transmission Date: 20151125
  Serious: Yes (Other)
  Sender: FDA-Public Use
  Company Number: PHJP2015JP012896

PATIENT
  Age: 72 Year
  Sex: Female

DRUGS (2)
  1. ZOMETA [Suspect]
     Active Substance: ZOLEDRONIC ACID
     Indication: METASTASES TO BONE
     Dosage: 164 MG, UNK
     Route: 041
     Dates: start: 200404
  2. ZOMETA [Suspect]
     Active Substance: ZOLEDRONIC ACID
     Indication: BREAST CANCER

REACTIONS (9)
  - Swelling [Unknown]
  - Osteomyelitis [Recovered/Resolved]
  - Osteitis condensans [Unknown]
  - Renal impairment [Unknown]
  - Osteolysis [Unknown]
  - Sinusitis [Recovered/Resolved]
  - Pain [Unknown]
  - Gingival abscess [Unknown]
  - Exposed bone in jaw [Unknown]
